FAERS Safety Report 7128162-6 (Version None)
Quarter: 2010Q4

REPORT INFORMATION
  Report Type: 
  Country: None (occurrence: None)
  Receive Date: 20101130
  Receipt Date: 20101119
  Transmission Date: 20110411
  Serious: Yes (Hospitalization)
  Sender: FDA-Public Use
  Company Number: CH-NOVOPROD-316421

PATIENT
  Age: 66 Year
  Sex: Male
  Weight: 121 kg

DRUGS (5)
  1. VICTOZA [Suspect]
     Indication: TYPE 2 DIABETES MELLITUS
     Dosage: 1.8 MG, UNK
     Dates: start: 20100201
  2. DIAMICRON [Concomitant]
     Dosage: 30 MG, TID
     Route: 048
  3. PRAVALOTIN [Concomitant]
     Dosage: 20 MG, QD
     Route: 048
  4. OEDEMEX [Concomitant]
     Dosage: 20 MG, QD
  5. SINTROM [Concomitant]
     Dosage: ACCORDING TO INR

REACTIONS (1)
  - PANCREATITIS [None]
